FAERS Safety Report 11551655 (Version 2)
Quarter: 2015Q3

REPORT INFORMATION
  Report Type: Spontaneous
  Country: US (occurrence: US)
  Receive Date: 20150903
  Receipt Date: 20150916
  Transmission Date: 20151125
  Serious: No
  Sender: FDA-Public Use
  Company Number: US-ELI_LILLY_AND_COMPANY-US201104006462

PATIENT
  Sex: Male

DRUGS (3)
  1. LANTUS [Concomitant]
     Active Substance: INSULIN GLARGINE
     Indication: PRODUCT USED FOR UNKNOWN INDICATION
     Dosage: UNK
     Route: 065
  2. HUMALOG [Suspect]
     Active Substance: INSULIN LISPRO
     Indication: DIABETES MELLITUS
     Dosage: UNK UNK, TID
     Dates: start: 20110414
  3. HUMALOG [Suspect]
     Active Substance: INSULIN LISPRO
     Indication: DIABETES MELLITUS
     Dosage: UNK, TID
     Dates: start: 2004

REACTIONS (8)
  - Hypoacusis [Unknown]
  - Macular degeneration [Unknown]
  - Anger [Unknown]
  - Dizziness [Recovered/Resolved]
  - Visual acuity reduced [Unknown]
  - Blood glucose decreased [Recovered/Resolved]
  - Frustration [Unknown]
  - Asthenia [Unknown]

NARRATIVE: CASE EVENT DATE: 2004
